FAERS Safety Report 18960188 (Version 2)
Quarter: 2021Q1

REPORT INFORMATION
  Report Type: Spontaneous
  Country: GB (occurrence: GB)
  Receive Date: 20210302
  Receipt Date: 20210309
  Transmission Date: 20210420
  Serious: Yes (Hospitalization)
  Sender: FDA-Public Use
  Company Number: GB-MYLANLABS-2021M1012172

PATIENT
  Age: 50 Year
  Sex: Female
  Weight: 130 kg

DRUGS (7)
  1. CLOZARIL [Suspect]
     Active Substance: CLOZAPINE
     Indication: SCHIZOPHRENIA
     Dosage: 100MG TAB ONE MANE ONE NOCTE
     Route: 048
     Dates: start: 20190222, end: 20210213
  2. PRIADEL                            /00033702/ [Concomitant]
     Active Substance: LITHIUM CARBONATE
     Dosage: 400MG TWO NOCTE
     Route: 048
  3. THIAMINE. [Concomitant]
     Active Substance: THIAMINE
     Dosage: 100 MILLIGRAM, QD
     Route: 048
  4. CLOZARIL [Suspect]
     Active Substance: CLOZAPINE
     Dosage: 25MG TABLET THREE MANE AND TWO NOCTE
     Route: 048
     Dates: start: 20190222, end: 20210213
  5. CLOZARIL [Suspect]
     Active Substance: CLOZAPINE
     Dosage: UNK
     Route: 048
  6. SOLIFENACIN [Concomitant]
     Active Substance: SOLIFENACIN
     Dosage: 10MG ONE DAILY
     Route: 048
  7. LEVOTHYROXINE. [Concomitant]
     Active Substance: LEVOTHYROXINE
     Dosage: 100 MICROGRAM, QD
     Route: 048

REACTIONS (1)
  - Hospitalisation [Recovering/Resolving]
